FAERS Safety Report 6977312-0 (Version None)
Quarter: 2010Q3

REPORT INFORMATION
  Report Type: 
  Country: None (occurrence: None)
  Receive Date: 20100910
  Receipt Date: 20100331
  Transmission Date: 20110219
  Serious: Yes (Other)
  Sender: FDA-Public Use
  Company Number: US-BAYER-201017098NA

PATIENT
  Age: 74 Year
  Sex: Male
  Weight: 77 kg

DRUGS (8)
  1. LEVITRA [Suspect]
     Indication: ERECTILE DYSFUNCTION
     Route: 048
  2. VIAGRA [Suspect]
     Indication: ERECTILE DYSFUNCTION
     Route: 048
  3. VIAGRA [Suspect]
     Route: 048
  4. VIAGRA [Suspect]
     Route: 048
  5. TADALAFIL [Concomitant]
     Indication: ERECTILE DYSFUNCTION
     Route: 065
  6. UNKNOWN DRUG [Concomitant]
     Indication: ERECTILE DYSFUNCTION
     Route: 048
  7. TERAZOSIN HCL [Concomitant]
     Indication: PROSTATIC DISORDER
     Route: 065
     Dates: start: 19900101
  8. ATORVASTATIN CALCIUM [Concomitant]
     Indication: PRODUCT USED FOR UNKNOWN INDICATION
     Dosage: TOTAL DAILY DOSE: 10 MG
     Route: 065
     Dates: start: 20080101

REACTIONS (8)
  - CYANOPSIA [None]
  - DIABETES MELLITUS [None]
  - DRUG INEFFECTIVE [None]
  - ERECTILE DYSFUNCTION [None]
  - EYE DISORDER [None]
  - FLUSHING [None]
  - HEADACHE [None]
  - VISION BLURRED [None]
